FAERS Safety Report 10361169 (Version 2)
Quarter: 2014Q3

REPORT INFORMATION
  Report Type: Report from Study
  Country: CO (occurrence: CO)
  Receive Date: 20140804
  Receipt Date: 20140804
  Transmission Date: 20150326
  Serious: Yes (Death)
  Sender: FDA-Public Use
  Company Number: PHHY2013CO020805

PATIENT
  Age: 67 Year
  Sex: Female

DRUGS (5)
  1. FEMARA [Concomitant]
     Active Substance: LETROZOLE
  2. AFINITOR [Suspect]
     Active Substance: EVEROLIMUS
     Indication: BREAST CANCER
     Dosage: 10 MG, QD
     Dates: start: 20120927, end: 20131030
  3. IBANDRONIC ACID [Concomitant]
     Active Substance: IBANDRONIC ACID
  4. LETROZOLE. [Concomitant]
     Active Substance: LETROZOLE
  5. IBANDRONATE [Concomitant]
     Active Substance: IBANDRONATE SODIUM

REACTIONS (2)
  - Death [Fatal]
  - Sensory loss [Recovering/Resolving]

NARRATIVE: CASE EVENT DATE: 20121228
